FAERS Safety Report 5887679-2 (Version None)
Quarter: 2008Q3

REPORT INFORMATION
  Report Type: 
  Country: None (occurrence: None)
  Receive Date: 20080918
  Receipt Date: 20080917
  Transmission Date: 20090109
  Serious: Yes (Other)
  Sender: FDA-Public Use
  Company Number: FR-BRISTOL-MYERS SQUIBB COMPANY-14181374

PATIENT
  Age: 63 Year
  Sex: Female

DRUGS (4)
  1. ORENCIA [Suspect]
     Indication: RHEUMATOID ARTHRITIS
     Dosage: INTERRUPTED FOR 2 WEEKS THEN REINTRODUCED
     Route: 042
     Dates: start: 20080301
  2. CORTANCYL [Concomitant]
  3. ACETAMINOPHEN [Concomitant]
  4. LEXOMIL [Concomitant]

REACTIONS (1)
  - HEPATITIS [None]
